FAERS Safety Report 9588898 (Version 1)
Quarter: 2013Q4

REPORT INFORMATION
  Report Type: Spontaneous
  Country: US (occurrence: US)
  Receive Date: 20131003
  Receipt Date: 20131003
  Transmission Date: 20140711
  Serious: No
  Sender: FDA-Public Use
  Company Number: US-AMGEN-USASP2012066565

PATIENT
  Sex: Female
  Weight: 63.49 kg

DRUGS (6)
  1. ENBREL [Suspect]
     Indication: RHEUMATOID ARTHRITIS
     Dosage: 50 MG, QWK
     Route: 058
  2. MULTIVITAMIN                       /00097801/ [Concomitant]
     Dosage: UNK
  3. NAPROSYN                           /00256201/ [Concomitant]
     Dosage: 250 MG, UNK
  4. SULFASALAZIN [Concomitant]
     Dosage: 500 MG, UNK
  5. XANAX [Concomitant]
     Dosage: 0.25 MG, UNK
  6. PREDNISONE [Concomitant]
     Dosage: 1 MG, UNK

REACTIONS (3)
  - Arthralgia [Unknown]
  - Musculoskeletal pain [Unknown]
  - Pain in extremity [Unknown]
